FAERS Safety Report 9467498 (Version 1)
Quarter: 2013Q3

REPORT INFORMATION
  Report Type: Spontaneous
  Country: US (occurrence: None)
  Receive Date: 20130819
  Receipt Date: 20130819
  Transmission Date: 20140515
  Serious: No
  Sender: FDA-Public Use
  Company Number: None

PATIENT
  Age: 75 Year
  Sex: Female
  Weight: 63.7 kg

DRUGS (1)
  1. ZOLEDRONIC ACID (ZOLENDRONATE, ZOMETA) [Suspect]
     Dates: end: 20120419

REACTIONS (1)
  - Osteonecrosis of jaw [None]
